FAERS Safety Report 24276156 (Version 1)
Quarter: 2024Q3

REPORT INFORMATION
  Report Type: Spontaneous
  Country: US (occurrence: US)
  Receive Date: 20240903
  Receipt Date: 20240903
  Transmission Date: 20241016
  Serious: Yes (Other)
  Sender: BAXTER
  Company Number: US-BAXTER-2024BAX023704

PATIENT
  Age: 69 Year
  Sex: Male
  Weight: 94.9 kg

DRUGS (2)
  1. MYXREDLIN [Suspect]
     Active Substance: INSULIN HUMAN
     Indication: Postoperative care
     Dosage: UNK
     Route: 065
     Dates: end: 20240627
  2. MYXREDLIN [Suspect]
     Active Substance: INSULIN HUMAN
     Indication: Diabetes mellitus inadequate control

REACTIONS (2)
  - Critical illness [Unknown]
  - Drug ineffective [Recovering/Resolving]

NARRATIVE: CASE EVENT DATE: 20240709
